FAERS Safety Report 5901042-7 (Version None)
Quarter: 2008Q3

REPORT INFORMATION
  Report Type: 
  Country: None (occurrence: None)
  Receive Date: 20080929
  Receipt Date: 20080918
  Transmission Date: 20090109
  Serious: Yes (Hospitalization)
  Sender: FDA-Public Use
  Company Number: US-AMGEN-US306670

PATIENT
  Sex: Female

DRUGS (9)
  1. ENBREL [Suspect]
     Indication: RHEUMATOID ARTHRITIS
     Route: 058
     Dates: start: 19990315
  2. ENBREL [Suspect]
     Route: 048
     Dates: start: 19920101
  3. PREDNISONE TAB [Concomitant]
     Route: 065
     Dates: start: 20021030
  4. LEUCOVORIN CALCIUM [Concomitant]
     Route: 065
     Dates: start: 20021030
  5. LIPITOR [Concomitant]
  6. MAVIK [Concomitant]
  7. FOLIC ACID [Concomitant]
  8. PREMARIN [Concomitant]
  9. ZOLOFT [Concomitant]

REACTIONS (9)
  - ABDOMINAL PAIN [None]
  - BLOOD AMYLASE DECREASED [None]
  - BLOOD CHLORIDE DECREASED [None]
  - BLOOD POTASSIUM DECREASED [None]
  - BLOOD SODIUM DECREASED [None]
  - CHILLS [None]
  - COUGH [None]
  - PNEUMONIA [None]
  - PYREXIA [None]
